FAERS Safety Report 13731480 (Version 1)
Quarter: 2017Q3

REPORT INFORMATION
  Report Type: Spontaneous
  Country: GB (occurrence: GB)
  Receive Date: 20170707
  Receipt Date: 20170707
  Transmission Date: 20171127
  Serious: Yes (Hospitalization, Other)
  Sender: FDA-Public Use
  Company Number: GB-TESARO, INC-GB-2017TSO01357

PATIENT

DRUGS (1)
  1. NIRAPARIB [Suspect]
     Active Substance: NIRAPARIB
     Indication: PRODUCT USED FOR UNKNOWN INDICATION
     Dosage: 300 MG, UNK
     Dates: start: 20170609, end: 201706

REACTIONS (11)
  - Balance disorder [Unknown]
  - Dizziness [Unknown]
  - Tremor [Unknown]
  - Thrombocytopenia [Recovering/Resolving]
  - Contusion [Unknown]
  - Hypomagnesaemia [Unknown]
  - Tachycardia [Unknown]
  - Anaemia [Unknown]
  - Constipation [Recovered/Resolved]
  - Renal impairment [Unknown]
  - Rectal haemorrhage [Recovered/Resolved]

NARRATIVE: CASE EVENT DATE: 20170621
